FAERS Safety Report 19729285 (Version 1)
Quarter: 2021Q3

REPORT INFORMATION
  Report Type: Spontaneous
  Country: CZ (occurrence: CZ)
  Receive Date: 20210820
  Receipt Date: 20210820
  Transmission Date: 20211014
  Serious: Yes (Other)
  Sender: FDA-Public Use
  Company Number: CZ-BRISTOL-MYERS SQUIBB COMPANY-BMS-2021-082603

PATIENT
  Age: 61 Year
  Sex: Male
  Weight: 80 kg

DRUGS (1)
  1. NIVOLUMAB [Suspect]
     Active Substance: NIVOLUMAB
     Indication: PANCOAST^S TUMOUR
     Dosage: 240 MILLIGRAM, Q2WK
     Route: 042
     Dates: start: 20180626, end: 202004

REACTIONS (5)
  - Biliary colic [Unknown]
  - Mycobacterial infection [Unknown]
  - Malignant neoplasm progression [Unknown]
  - Vocal cord paralysis [Unknown]
  - Dehydration [Unknown]

NARRATIVE: CASE EVENT DATE: 201903
